FAERS Safety Report 6523805-X (Version None)
Quarter: 2009Q4

REPORT INFORMATION
  Report Type: 
  Country: None (occurrence: None)
  Receive Date: 20091231
  Receipt Date: 20091222
  Transmission Date: 20100525
  Serious: Yes (Other)
  Sender: FDA-Public Use
  Company Number: DE-ROCHE-676303

PATIENT
  Sex: Female
  Weight: 55 kg

DRUGS (11)
  1. BEVACIZUMAB [Suspect]
     Indication: BREAST CANCER
     Dosage: DAY 1. CYCLES ARE REPEATED EVERY THREE WEEKS. LAST DOSE PRIOR TO SAE: 03 DEC 09.
     Route: 042
     Dates: start: 20090813
  2. CAPECITABINE [Suspect]
     Indication: BREAST CANCER
     Dosage: DAYS 1-14, LAST DOSE PRIOR TO SAE: 17 DEC 09.
     Route: 065
     Dates: start: 20090819
  3. VINORELBINE [Suspect]
     Indication: BREAST CANCER
     Dosage: DAYS 1+8, CYCLES ARE REPEATED EVERY THREE WEEKS, LAST DOSE PRIOR TO SAE: 10 DEC 09.
     Route: 042
     Dates: start: 20090813
  4. ARCOXIA [Concomitant]
     Dates: start: 20090730
  5. MCP [Concomitant]
     Dates: start: 20090730
  6. L-THYROXIN [Concomitant]
     Dates: start: 20090730
  7. PARIET [Concomitant]
     Dates: start: 20090811
  8. OXOZEPAM [Concomitant]
     Dates: start: 20091022
  9. OXYCODONE [Concomitant]
     Dates: start: 20091022
  10. RAMIPRIL [Concomitant]
     Dates: start: 20091203
  11. AMLODIPINE [Concomitant]
     Dates: start: 20091210

REACTIONS (1)
  - PNEUMOTHORAX [None]
